FAERS Safety Report 4620877-4 (Version None)
Quarter: 2005Q1

REPORT INFORMATION
  Report Type: 
  Country: None (occurrence: None)
  Receive Date: 20050325
  Receipt Date: 20050315
  Transmission Date: 20050727
  Serious: Yes (Hospitalization)
  Sender: FDA-Public Use
  Company Number: PHEH2005US03017

PATIENT
  Age: 86 Year
  Sex: Male

DRUGS (6)
  1. VISUDYNE [Suspect]
     Indication: MACULAR DEGENERATION
     Dosage: 5.7 MG DAILY IV
     Route: 042
     Dates: start: 20041217, end: 20041217
  2. MACRODANTIN [Concomitant]
  3. METOPROLOL TARTRATE [Concomitant]
  4. LEVOTHYROXINE [Concomitant]
  5. CLARINEX USA [Concomitant]
  6. HYTRIN [Concomitant]

REACTIONS (2)
  - AORTIC VALVE DISEASE [None]
  - ATRIAL FIBRILLATION [None]
